FAERS Safety Report 5931910-1 (Version None)
Quarter: 2008Q4

REPORT INFORMATION
  Report Type: 
  Country: None (occurrence: None)
  Receive Date: 20081027
  Receipt Date: 20081015
  Transmission Date: 20090506
  Serious: Yes (Other)
  Sender: FDA-Public Use
  Company Number: JP-PFIZER INC-2008087417

PATIENT
  Age: 34 Year
  Sex: Female

DRUGS (2)
  1. UNASYN [Suspect]
     Indication: PERITONITIS
     Dosage: DAILY DOSE:3GRAM
     Route: 042
     Dates: start: 20081006, end: 20081009
  2. PERDIPINE [Concomitant]
     Route: 042
     Dates: start: 20081002, end: 20081007

REACTIONS (1)
  - LARYNGEAL OEDEMA [None]
